FAERS Safety Report 12681285 (Version 2)
Quarter: 2017Q4

REPORT INFORMATION
  Report Type: Report from Study
  Country: PA (occurrence: PA)
  Receive Date: 20160824
  Receipt Date: 20171220
  Transmission Date: 20180320
  Serious: No
  Sender: FDA-Public Use
  Company Number: PHHY2016PA116044

PATIENT
  Age: 57 Year
  Sex: Female

DRUGS (1)
  1. GILENYA [Suspect]
     Active Substance: FINGOLIMOD HYDROCHLORIDE
     Indication: PRODUCT USED FOR UNKNOWN INDICATION
     Dosage: 0.5 MG, UNK
     Route: 065

REACTIONS (7)
  - Gait disturbance [Unknown]
  - Nervousness [Unknown]
  - Fatigue [Unknown]
  - Contusion [Unknown]
  - Dizziness [Unknown]
  - Fall [Unknown]
  - Multiple sclerosis relapse [Unknown]
